FAERS Safety Report 16945712 (Version 2)
Quarter: 2021Q2

REPORT INFORMATION
  Report Type: Spontaneous
  Country: FR (occurrence: FR)
  Receive Date: 20191022
  Receipt Date: 20210607
  Transmission Date: 20210716
  Serious: Yes (Other)
  Sender: FDA-Public Use
  Company Number: FR-US-PROVELL PHARMACEUTICALS LLC-9008044

PATIENT
  Age: 54 Year
  Sex: Female
  Weight: 115 kg

DRUGS (17)
  1. APROVEL [Concomitant]
     Active Substance: IRBESARTAN
     Indication: PRODUCT USED FOR UNKNOWN INDICATION
  2. ALDACTAZINE [Concomitant]
     Active Substance: ALTHIAZIDE\SPIRONOLACTONE
     Indication: PRODUCT USED FOR UNKNOWN INDICATION
     Dates: start: 20140919
  3. BISOPROLOL [Concomitant]
     Active Substance: BISOPROLOL
     Indication: HYPERTENSION
     Dates: start: 20140919
  4. AMAREL [Concomitant]
     Active Substance: GLIMEPIRIDE
     Dosage: INCREASED
  5. IRBESARTAN. [Concomitant]
     Active Substance: IRBESARTAN
     Indication: HYPERTENSION
  6. GLIMEPIRIDE. [Concomitant]
     Active Substance: GLIMEPIRIDE
     Indication: DIABETES MELLITUS
     Dosage: 6 MG/ML
     Dates: start: 20140919
  7. GLUCOPHAGE [Concomitant]
     Active Substance: METFORMIN HYDROCHLORIDE
     Indication: DIABETES MELLITUS
     Dates: start: 20131001
  8. ALDACTAZINE [Concomitant]
     Active Substance: ALTHIAZIDE\SPIRONOLACTONE
     Indication: PRODUCT USED FOR UNKNOWN INDICATION
     Dosage: 25 MG/15 MG
  9. VICTOZA [Concomitant]
     Active Substance: LIRAGLUTIDE
     Indication: DIABETES MELLITUS
     Route: 058
     Dates: start: 20140919, end: 2018
  10. AMAREL [Concomitant]
     Active Substance: GLIMEPIRIDE
     Indication: PRODUCT USED FOR UNKNOWN INDICATION
     Dates: start: 20170616
  11. TARDYFERON [Concomitant]
     Active Substance: FERROUS SULFATE
     Indication: ANAEMIA
  12. DUPHASTON [Concomitant]
     Active Substance: DYDROGESTERONE
     Indication: PRODUCT USED FOR UNKNOWN INDICATION
     Dates: start: 20180203, end: 20180217
  13. LEVOTHYROX [Suspect]
     Active Substance: LEVOTHYROXINE
     Indication: POST PROCEDURAL HYPOTHYROIDISM
     Dates: start: 20170505
  14. CARDENSIEL [Concomitant]
     Active Substance: BISOPROLOL FUMARATE
     Indication: PRODUCT USED FOR UNKNOWN INDICATION
     Dosage: 2.5 X2
     Dates: start: 20170210
  15. LEVOTHYROX [Suspect]
     Active Substance: LEVOTHYROXINE
  16. INSULIN INJECTION [Concomitant]
     Active Substance: INSULIN NOS
     Indication: DIABETES MELLITUS
     Dates: start: 201811
  17. INEXIUM                            /01479302/ [Concomitant]
     Active Substance: ESOMEPRAZOLE MAGNESIUM
     Indication: PRODUCT USED FOR UNKNOWN INDICATION
     Dosage: 40 (UNSPECIFIED UNITS)

REACTIONS (40)
  - Fatigue [Not Recovered/Not Resolved]
  - Ligament sprain [Unknown]
  - Influenza like illness [Unknown]
  - Cystitis [Unknown]
  - Loss of personal independence in daily activities [Unknown]
  - Dyspnoea exertional [Unknown]
  - Headache [Unknown]
  - Palpitations [Unknown]
  - Feeling hot [Unknown]
  - Somnolence [Not Recovered/Not Resolved]
  - Back pain [Unknown]
  - Insomnia [Unknown]
  - Skin wound [Unknown]
  - Head injury [Unknown]
  - Anxiety [Unknown]
  - Intentional dose omission [Unknown]
  - Facial paralysis [Unknown]
  - Vestibular function test abnormal [Unknown]
  - Dizziness [Not Recovered/Not Resolved]
  - Fall [Unknown]
  - Sciatica [Unknown]
  - Paronychia [Unknown]
  - Deafness bilateral [Unknown]
  - Alopecia [Not Recovered/Not Resolved]
  - Lipase increased [Unknown]
  - Joint injury [Unknown]
  - Ear infection [Unknown]
  - Viral infection [Unknown]
  - Iron deficiency [Unknown]
  - Vertigo [Not Recovered/Not Resolved]
  - General physical health deterioration [Unknown]
  - Migraine [Unknown]
  - Nasopharyngitis [Unknown]
  - Asthma [Unknown]
  - Blood triglycerides increased [Unknown]
  - Muscle spasms [Unknown]
  - Loss of consciousness [Unknown]
  - Myalgia [Unknown]
  - Asthenia [Unknown]
  - Constipation [Unknown]

NARRATIVE: CASE EVENT DATE: 2017
